FAERS Safety Report 21890247 (Version 3)
Quarter: 2023Q1

REPORT INFORMATION
  Report Type: Spontaneous
  Country: IT (occurrence: IT)
  Receive Date: 20230120
  Receipt Date: 20230227
  Transmission Date: 20230417
  Serious: Yes (Other)
  Sender: FDA-Public Use
  Company Number: IT-ROCHE-3247284

PATIENT
  Age: 47 Year
  Sex: Male

DRUGS (20)
  1. BENDAMUSTINE HYDROCHLORIDE [Suspect]
     Active Substance: BENDAMUSTINE HYDROCHLORIDE
     Indication: Mantle cell lymphoma
     Dosage: [FOURTH LINE OF SYSTEMIC TREATMENT, POLATUZUMAB VEDOTIN (P-BR) ON DAYS 2 AND 3]
     Route: 042
     Dates: start: 202205, end: 202205
  2. BENDAMUSTINE HYDROCHLORIDE [Suspect]
     Active Substance: BENDAMUSTINE HYDROCHLORIDE
     Dosage: [SIXTH LINE OF SYSTEMIC TREATMENT, POLATUZUMAB VEDOTIN (P-BR) ON DAYS 1 AND 2]
     Route: 042
     Dates: start: 202210, end: 202211
  3. CISPLATIN [Suspect]
     Active Substance: CISPLATIN
     Indication: Mantle cell lymphoma
     Dosage: [FIRST LINE OF SYSTEMIC TREATMENT, R-CHOP/R-DHAOX (RITUXIMAB BIOSIMILLAR)]
     Route: 042
     Dates: start: 202104, end: 202110
  4. DOXORUBICIN HYDROCHLORIDE [Suspect]
     Active Substance: DOXORUBICIN HYDROCHLORIDE
     Indication: Mantle cell lymphoma
     Dosage: (FIRST LINE OF SYSTEMIC TREATMENT, R-CHOP/R-DHAOX ( RITUXIMAB BIOSIMILLAR))CHOP
     Route: 042
     Dates: start: 20210401, end: 20211001
  5. VINCRISTINE SULFATE [Suspect]
     Active Substance: VINCRISTINE SULFATE
     Indication: Mantle cell lymphoma
     Dosage: (FIRST LINE OF SYSTEMIC TREATMENT, R-CHOP/R-DHAOX ( RITUXIMAB BIOSIMILLAR))CHOP
     Route: 042
     Dates: start: 20210401, end: 20211001
  6. PREDNISONE [Suspect]
     Active Substance: PREDNISONE
     Indication: Mantle cell lymphoma
     Dosage: FIRST LINE OF SYSTEMIC TREATMENT, R-CHOP/R-DHAOX ( RITUXIMAB BIOSIMILLAR))CHOP
     Route: 042
     Dates: start: 20210401, end: 20211001
  7. CYTARABINE [Suspect]
     Active Substance: CYTARABINE
     Indication: Mantle cell lymphoma
     Dosage: [FIRST LINE OF SYSTEMIC TREATMENT, R-CHOP/R-DHAOX (RITUXIMAB BIOSIMILLAR)]
     Route: 042
     Dates: start: 202104, end: 202110
  8. RITUXIMAB [Suspect]
     Active Substance: RITUXIMAB
     Indication: Mantle cell lymphoma
     Dosage: [FIRST LINE OF SYSTEMIC TREATMENT, R-CHOP/R-DHAOX (RITUXIMAB BIOSIMILLAR)]
     Route: 042
     Dates: start: 202104, end: 202110
  9. RITUXIMAB [Suspect]
     Active Substance: RITUXIMAB
     Dosage: [FOURTH LINE OF SYSTEMIC TREATMENT, POLATUZUMAB VEDOTIN (P-BR) ON DAY 1]
     Route: 042
     Dates: start: 20220428, end: 202205
  10. RITUXIMAB [Suspect]
     Active Substance: RITUXIMAB
     Dosage: [SIXTH LINE OF SYSTEMIC TREATMENT, POLATUZUMAB VEDOTIN (P-BR) ON DAY 1]
     Route: 042
     Dates: start: 20221011, end: 20221103
  11. CYCLOPHOSPHAMIDE [Suspect]
     Active Substance: CYCLOPHOSPHAMIDE
     Indication: Mantle cell lymphoma
     Dosage: (FIRST LINE OF SYSTEMIC TREATMENT, R-CHOP/R-DHAOX ( RITUXIMAB BIOSIMILLAR))CHOP
     Route: 042
     Dates: start: 20210401, end: 20211001
  12. POLATUZUMAB VEDOTIN [Suspect]
     Active Substance: POLATUZUMAB VEDOTIN
     Indication: Mantle cell lymphoma
     Dosage: [FOURTH LINE OF SYSTEMIC TREATMENT, POLATUZUMAB VEDOTIN (P-BR) ON DAY 2]
     Route: 042
     Dates: start: 20220501, end: 202205
  13. POLATUZUMAB VEDOTIN [Suspect]
     Active Substance: POLATUZUMAB VEDOTIN
     Dosage: [SIXTH LINE OF SYSTEMIC TREATMENT, POLATUZUMAB VEDOTIN (P-BR) ON DAY 2]
     Route: 042
     Dates: start: 20221001, end: 20221101
  14. VENETOCLAX [Suspect]
     Active Substance: VENETOCLAX
     Indication: Mantle cell lymphoma
     Dosage: (THIRD LINE OF SYSTEMIC TREATMENT, IBRUTINIB + VENETOCLAX AND SPLENECTOMY)
     Route: 042
     Dates: start: 202203, end: 202204
  15. IMBRUVICA [Suspect]
     Active Substance: IBRUTINIB
     Indication: Mantle cell lymphoma
     Dosage: .(SECOND LINE OF SYSTEMIC TREATMENT,IBRUTINIB MONOTHERAPY)
     Route: 042
     Dates: start: 20211101, end: 20220201
  16. IMBRUVICA [Suspect]
     Active Substance: IBRUTINIB
     Dosage: THIRD LINE OF SYSTEMIC TREATMENT, IBRUTINIB +VENETOCLAX AND AND SPLENECTOMY)
     Route: 048
     Dates: start: 202203, end: 202204
  17. DIETARY SUPPLEMENT [Suspect]
     Active Substance: DIETARY SUPPLEMENT
     Indication: Mantle cell lymphoma
     Dosage: (FIRST LINE OF SYSTEMIC TREATMENT, R-CHOP/R-DHAOX)(RITUXIMAB BIOSIMILLAR)
     Route: 042
     Dates: start: 20210401, end: 20211001
  18. BACTRIM [Concomitant]
     Active Substance: SULFAMETHOXAZOLE\TRIMETHOPRIM
     Indication: Prophylaxis
     Route: 065
  19. ACYCLOVIR [Concomitant]
     Active Substance: ACYCLOVIR
     Indication: Prophylaxis
     Route: 065
  20. LINEZOLID [Concomitant]
     Active Substance: LINEZOLID
     Indication: Product used for unknown indication
     Route: 065

REACTIONS (3)
  - Cytopenia [Unknown]
  - Lymphadenopathy [Unknown]
  - Off label use [Unknown]

NARRATIVE: CASE EVENT DATE: 20220501
